FAERS Safety Report 10183938 (Version 1)
Quarter: 2014Q2

REPORT INFORMATION
  Report Type: Spontaneous
  Country: US (occurrence: US)
  Receive Date: 20140520
  Receipt Date: 20140520
  Transmission Date: 20141212
  Serious: Yes (Other)
  Sender: FDA-Public Use
  Company Number: US-ASTRAZENECA-2014SE32242

PATIENT
  Sex: Female

DRUGS (6)
  1. SYMBICORT PMDI [Suspect]
     Dosage: UNKNOWN
     Route: 055
  2. CIPRO [Concomitant]
  3. VITAMIN B12 [Concomitant]
     Dosage: GENERIC
  4. FELDENE [Concomitant]
  5. MEDICATION FOR HYPOTHYROIDISM [Concomitant]
  6. BENADRYL [Concomitant]

REACTIONS (4)
  - Monoplegia [Unknown]
  - Skin cancer [Unknown]
  - Large intestine polyp [Unknown]
  - Hypothyroidism [Unknown]
